FAERS Safety Report 6117357-6 (Version None)
Quarter: 2009Q1

REPORT INFORMATION
  Report Type: 
  Country: None (occurrence: None)
  Receive Date: 20090314
  Receipt Date: 20090116
  Transmission Date: 20090719
  Serious: No
  Sender: FDA-Public Use
  Company Number: US-ABBOTT-09P-163-0498164-00

PATIENT
  Sex: Female
  Weight: 57.658 kg

DRUGS (3)
  1. HUMIRA [Suspect]
     Indication: CROHN'S DISEASE
     Dates: start: 20070101, end: 20070101
  2. HUMIRA [Suspect]
  3. VALTREX [Concomitant]
     Indication: ORAL HERPES
     Dates: start: 20070101

REACTIONS (2)
  - ORAL HERPES [None]
  - STOMATITIS [None]
